FAERS Safety Report 8643123 (Version 3)
Quarter: 2015Q2

REPORT INFORMATION
  Report Type: Spontaneous
  Country: US (occurrence: US)
  Receive Date: 20120629
  Receipt Date: 20150428
  Transmission Date: 20150821
  Serious: Yes (Congenital Anomaly, Other)
  Sender: FDA-Public Use
  Company Number: US-PFIZER INC-2012153950

PATIENT
  Sex: Female

DRUGS (8)
  1. SERTRALINE HCL [Suspect]
     Active Substance: SERTRALINE HYDROCHLORIDE
     Indication: DEPRESSION
     Dosage: 100 MG, DAILY
     Route: 064
     Dates: start: 2007, end: 2010
  2. ZOLOFT [Suspect]
     Active Substance: SERTRALINE HYDROCHLORIDE
     Dosage: UNK
     Route: 064
     Dates: start: 2008, end: 2011
  3. ZOLOFT [Suspect]
     Active Substance: SERTRALINE HYDROCHLORIDE
     Indication: POST CONCUSSION SYNDROME
     Dosage: UNK
     Route: 064
     Dates: start: 200802, end: 2010
  4. ARMOUR THYROID [Concomitant]
     Active Substance: THYROID, PORCINE\THYROID, UNSPECIFIED
     Indication: HYPERTHYROIDISM
     Dosage: 1 DF, 1X/DAY
     Route: 064
     Dates: start: 2003
  5. ZOLOFT [Suspect]
     Active Substance: SERTRALINE HYDROCHLORIDE
     Indication: DEPRESSION
     Dosage: UNK
     Route: 064
     Dates: start: 2007, end: 2008
  6. SERTRALINE HCL [Suspect]
     Active Substance: SERTRALINE HYDROCHLORIDE
     Indication: POST CONCUSSION SYNDROME
  7. PRENATAL VITAMINS [Concomitant]
     Active Substance: VITAMINS
     Indication: PREGNANCY
     Dosage: UNK, 1X/DAY
     Route: 064
     Dates: start: 2008, end: 2010
  8. IBUPROFEN. [Concomitant]
     Active Substance: IBUPROFEN
     Indication: PAIN
     Dosage: UNK, AS NEEDED
     Route: 064

REACTIONS (2)
  - Patent ductus arteriosus [Not Recovered/Not Resolved]
  - Maternal exposure timing unspecified [Not Recovered/Not Resolved]

NARRATIVE: CASE EVENT DATE: 20100513
